FAERS Safety Report 4355172-4 (Version None)
Quarter: 2004Q2

REPORT INFORMATION
  Report Type: 
  Country: None (occurrence: None)
  Receive Date: 20040510
  Receipt Date: 20040503
  Transmission Date: 20050107
  Serious: Yes (Life-Threatening, Hospitalization)
  Sender: FDA-Public Use
  Company Number: PHEH2004US04871

PATIENT
  Age: 65 Year
  Sex: Male

DRUGS (1)
  1. GLEEVEC [Suspect]
     Indication: CHRONIC MYELOID LEUKAEMIA
     Dosage: 400 MG, QD
     Route: 048
     Dates: start: 20040101, end: 20040422

REACTIONS (4)
  - ACUTE RESPIRATORY DISTRESS SYNDROME [None]
  - HYPOXIA [None]
  - LOBAR PNEUMONIA [None]
  - LUNG INFILTRATION [None]
